FAERS Safety Report 5816318-1 (Version None)
Quarter: 2008Q3

REPORT INFORMATION
  Report Type: 
  Country: None (occurrence: None)
  Receive Date: 20080717
  Receipt Date: 20080717
  Transmission Date: 20090109
  Serious: Yes (Hospitalization)
  Sender: FDA-Public Use
  Company Number: None

PATIENT
  Age: 83 Year
  Sex: Male
  Weight: 72.5755 kg

DRUGS (1)
  1. BACTRIM DS [Suspect]
     Dosage: 160/80MG TWICE DAILY ORAL
     Route: 048

REACTIONS (3)
  - ASTHENIA [None]
  - HYPERKALAEMIA [None]
  - NAUSEA [None]
